FAERS Safety Report 6730785-0 (Version None)
Quarter: 2010Q2

REPORT INFORMATION
  Report Type: 
  Country: None (occurrence: None)
  Receive Date: 20100518
  Receipt Date: 20100512
  Transmission Date: 20101027
  Serious: Yes (Hospitalization)
  Sender: FDA-Public Use
  Company Number: GXKR2010DE05313

PATIENT
  Sex: Female

DRUGS (3)
  1. METOPROLOL SUCCINATE [Suspect]
     Indication: ARRHYTHMIA
     Dosage: 1 DF, QD
     Route: 048
     Dates: start: 20100501
  2. METOPROLOL TARTRATE [Suspect]
     Indication: ARRHYTHMIA
     Dosage: 0.5 DF, BID
  3. LEVOTHYROXINE SODIUM [Concomitant]
     Indication: THYROID DISORDER
     Route: 048

REACTIONS (3)
  - ARRHYTHMIA [None]
  - DISEASE PROGRESSION [None]
  - DRUG INTERACTION [None]
